FAERS Safety Report 4598609-8 (Version None)
Quarter: 2005Q1

REPORT INFORMATION
  Report Type: 
  Country: None (occurrence: None)
  Receive Date: 20050301
  Receipt Date: 20050301
  Transmission Date: 20050727
  Serious: Yes (Hospitalization)
  Sender: FDA-Public Use
  Company Number: None

PATIENT
  Sex: Male

DRUGS (10)
  1. IMIQUIMOD CREAM 5% [Suspect]
     Indication: ACTINIC KERATOSIS
     Dosage: LIBRAL AMT BID TOPICAL
     Route: 061
     Dates: start: 20040928, end: 20041014
  2. ISOSORBIDE MONONITRATE [Concomitant]
  3. ASPIRIN [Concomitant]
  4. ATENOLOL [Concomitant]
  5. CLOPIDOGREL BISULFATE [Concomitant]
  6. OMEPRAZOLE [Concomitant]
  7. METFORMIN HCL [Concomitant]
  8. SENNA [Concomitant]
  9. SIMETHICONE [Concomitant]
  10. ATORVASTATIN [Concomitant]

REACTIONS (3)
  - CELLULITIS [None]
  - NAUSEA [None]
  - VOMITING [None]
